FAERS Safety Report 6117660-X (Version None)
Quarter: 2009Q1

REPORT INFORMATION
  Report Type: 
  Country: None (occurrence: None)
  Receive Date: 20090314
  Receipt Date: 20090122
  Transmission Date: 20090719
  Serious: No
  Sender: FDA-Public Use
  Company Number: US-ABBOTT-09P-163-0499309-00

PATIENT
  Sex: Female
  Weight: 54.48 kg

DRUGS (14)
  1. HUMIRA [Suspect]
     Indication: RHEUMATOID ARTHRITIS
     Route: 058
     Dates: start: 20060101
  2. SYNTHROID [Concomitant]
     Indication: GOITRE
     Route: 048
     Dates: start: 19740101
  3. FOLIC ACID [Concomitant]
     Indication: RHEUMATOID ARTHRITIS
     Route: 048
  4. CELEBREX [Concomitant]
     Indication: ARTHRITIS
     Route: 048
  5. CELEBREX [Concomitant]
     Indication: INFLAMMATION
  6. PREMARIN [Concomitant]
     Indication: HORMONE REPLACEMENT THERAPY
     Route: 048
  7. NEXIUM [Concomitant]
     Indication: HIATUS HERNIA
     Route: 048
  8. NEXIUM [Concomitant]
     Indication: GASTROOESOPHAGEAL REFLUX DISEASE
  9. PROCARDIA XL [Concomitant]
     Indication: HYPERTENSION
     Route: 048
  10. HYDROCHLOROTHIAZIDE [Concomitant]
     Indication: DIURETIC THERAPY
     Dosage: QD
     Route: 048
  11. MULTI-VITAMIN [Concomitant]
     Indication: VITAMIN SUPPLEMENTATION
     Route: 048
  12. CALCIUM [Concomitant]
     Indication: MINERAL SUPPLEMENTATION
     Dosage: UNSURE OF STRENGTH
     Route: 048
  13. ZOLOFT [Concomitant]
     Indication: STRESS
     Route: 048
  14. ZOLOFT [Concomitant]
     Indication: DEPRESSION

REACTIONS (2)
  - NASOPHARYNGITIS [None]
  - SINUSITIS [None]
